FAERS Safety Report 6225652-5 (Version None)
Quarter: 2009Q2

REPORT INFORMATION
  Report Type: 
  Country: None (occurrence: None)
  Receive Date: 20090612
  Receipt Date: 20090429
  Transmission Date: 20091009
  Serious: No
  Sender: FDA-Public Use
  Company Number: US-ABBOTT-09P-163-0570746-00

PATIENT
  Sex: Female
  Weight: 113.5 kg

DRUGS (12)
  1. HUMIRA [Suspect]
     Indication: RHEUMATOID ARTHRITIS
     Route: 058
     Dates: start: 20070101, end: 20080101
  2. HUMIRA [Suspect]
     Route: 058
     Dates: start: 20090413
  3. PREDNISONE [Concomitant]
     Indication: DRUG USE FOR UNKNOWN INDICATION
     Route: 048
     Dates: start: 20080101
  4. PREDNISONE [Concomitant]
     Route: 048
     Dates: start: 20080101, end: 20080101
  5. PREDNISONE [Concomitant]
     Route: 048
  6. PREDNISONE [Concomitant]
     Route: 048
     Dates: end: 20080101
  7. CELEBREX [Concomitant]
     Indication: DRUG USE FOR UNKNOWN INDICATION
  8. UNNAMED MEDICATION [Concomitant]
     Indication: HYPERSENSITIVITY
     Route: 050
  9. UNNAMED MEDICATION [Concomitant]
     Route: 048
  10. LISINOPRIL [Concomitant]
     Indication: HYPERTENSION
  11. AMLIDORIDE [Concomitant]
     Indication: HYPERTENSION
  12. PROBIOTICS [Concomitant]
     Indication: FUNGAL INFECTION

REACTIONS (6)
  - ASTHENIA [None]
  - FATIGUE [None]
  - FURUNCLE [None]
  - HEADACHE [None]
  - RHEUMATOID ARTHRITIS [None]
  - TREMOR [None]
